FAERS Safety Report 22892300 (Version 2)
Quarter: 2023Q4

REPORT INFORMATION
  Report Type: Report from Study
  Country: ES (occurrence: None)
  Receive Date: 20230901
  Receipt Date: 20231117
  Transmission Date: 20240110
  Serious: Yes (Hospitalization)
  Sender: FDA-Public Use
  Company Number: ES-ROCHE-3412386

PATIENT
  Age: 76 Year
  Sex: Male
  Weight: 68.3 kg

DRUGS (3)
  1. ATEZOLIZUMAB [Suspect]
     Active Substance: ATEZOLIZUMAB
     Indication: Hepatocellular carcinoma
     Dosage: ON 19/JUL/2023, THE PATIENT RECEIVED THE MOST RECENT DOSE OF ATEZOLIZUMAB 1200 MG PRIOR TO THE ONSET
     Route: 042
     Dates: start: 20191219
  2. CABOZANTINIB [Suspect]
     Active Substance: CABOZANTINIB
     Indication: Hepatocellular carcinoma
     Dosage: ON 16/AUG/2023, THE PATIENT RECEIVED THE MOST RECENT DOSE OF XL184 20MG, PRIOR TO THE ONSET OF THE E
     Route: 048
     Dates: start: 20191219
  3. CABOZANTINIB [Suspect]
     Active Substance: CABOZANTINIB
     Dosage: ON 16/AUG/2023, THE PATIENT RECEIVED THE MOST RECENT DOSE OF XL184 20MG, PRIOR TO THE ONSET OF THE E
     Route: 048
     Dates: start: 20230816

REACTIONS (2)
  - Diarrhoea [Recovered/Resolved]
  - Pulmonary embolism [Recovered/Resolved]

NARRATIVE: CASE EVENT DATE: 20230817
